FAERS Safety Report 19586224 (Version 1)
Quarter: 2021Q3

REPORT INFORMATION
  Report Type: Spontaneous
  Country: DE (occurrence: DE)
  Receive Date: 20210720
  Receipt Date: 20210720
  Transmission Date: 20211014
  Serious: Yes (Other)
  Sender: FDA-Public Use
  Company Number: DE-B.I. PHARMACEUTICALS,INC./RIDGEFIELD-2021-BI-116265

PATIENT
  Age: 62 Year
  Sex: Male
  Weight: 126 kg

DRUGS (2)
  1. JARDIANCE [Suspect]
     Active Substance: EMPAGLIFLOZIN
     Indication: TYPE 2 DIABETES MELLITUS
     Dosage: 25 MG 1?0?0
     Route: 048
     Dates: start: 20180209, end: 20210629
  2. TAZOBAC [TAZOBACTAM] [Concomitant]
     Indication: BETA HAEMOLYTIC STREPTOCOCCAL INFECTION

REACTIONS (2)
  - Fournier^s gangrene [Recovering/Resolving]
  - Cellulitis [Recovering/Resolving]

NARRATIVE: CASE EVENT DATE: 20210602
